FAERS Safety Report 4983201-3 (Version None)
Quarter: 2006Q2

REPORT INFORMATION
  Report Type: 
  Country: None (occurrence: None)
  Receive Date: 20060426
  Receipt Date: 20060412
  Transmission Date: 20061013
  Serious: Yes (Hospitalization)
  Sender: FDA-Public Use
  Company Number: AU-GLAXOSMITHKLINE-B0421260A

PATIENT
  Sex: Male

DRUGS (4)
  1. AVANDIA [Suspect]
  2. NAPROSYN [Concomitant]
  3. INSULIN [Concomitant]
  4. ANTI-DIABETIC MEDICATION [Concomitant]

REACTIONS (8)
  - ANGINA PECTORIS [None]
  - BACK PAIN [None]
  - DYSPNOEA [None]
  - FLUID RETENTION [None]
  - HEADACHE [None]
  - NECK PAIN [None]
  - OEDEMA PERIPHERAL [None]
  - PERIPHERAL COLDNESS [None]
